FAERS Safety Report 25514819 (Version 3)
Quarter: 2025Q3

REPORT INFORMATION
  Report Type: Report from Study
  Country: US (occurrence: US)
  Receive Date: 20250703
  Receipt Date: 20250924
  Transmission Date: 20251020
  Serious: No
  Sender: MALLINCKRODT
  Company Number: US-MALLINCKRODT-MNK202504081

PATIENT
  Sex: Female

DRUGS (2)
  1. CORTICOTROPIN [Suspect]
     Active Substance: CORTICOTROPIN
     Indication: Rheumatoid arthritis
  2. CORTICOTROPIN [Suspect]
     Active Substance: CORTICOTROPIN
     Indication: Rheumatoid arthritis

REACTIONS (8)
  - Cortisol decreased [Unknown]
  - Hot flush [Unknown]
  - Nausea [Unknown]
  - Joint stiffness [Unknown]
  - Fatigue [Unknown]
  - Mood swings [Unknown]
  - Fluid retention [Unknown]
  - Therapeutic response shortened [Unknown]
